FAERS Safety Report 8544456-1 (Version None)
Quarter: 2012Q3

REPORT INFORMATION
  Report Type: 
  Country: None (occurrence: None)
  Receive Date: 20120717
  Receipt Date: 20120709
  Transmission Date: 20120928
  Serious: Yes (Disabling)
  Sender: FDA-Public Use
  Company Number: USA/USA/12/0025006

PATIENT

DRUGS (2)
  1. ZOCOR [Suspect]
     Indication: BLOOD CHOLESTEROL
     Dates: start: 20100101, end: 20110701
  2. SIMVASTATIN [Suspect]
     Indication: BLOOD CHOLESTEROL
     Dates: start: 20100101, end: 20110701

REACTIONS (3)
  - ANHEDONIA [None]
  - ANXIETY [None]
  - PAIN [None]
